FAERS Safety Report 15053198 (Version 1)
Quarter: 2018Q2

REPORT INFORMATION
  Report Type: Report from Study
  Country: CA (occurrence: CA)
  Receive Date: 20180622
  Receipt Date: 20180622
  Transmission Date: 20180711
  Serious: Yes (Death)
  Sender: FDA-Public Use
  Company Number: CA-ACTELION-A-NJ2018-169382

PATIENT
  Age: 82 Year
  Sex: Female

DRUGS (9)
  1. ALLOPURINOL. [Concomitant]
     Active Substance: ALLOPURINOL
  2. ATROVENT [Concomitant]
     Active Substance: IPRATROPIUM BROMIDE
  3. PRAVASTATIN. [Concomitant]
     Active Substance: PRAVASTATIN
  4. WARFARIN [Concomitant]
     Active Substance: WARFARIN
  5. DILTIAZEM. [Concomitant]
     Active Substance: DILTIAZEM
  6. TRACLEER [Suspect]
     Active Substance: BOSENTAN
     Indication: PULMONARY ARTERIAL HYPERTENSION
     Dosage: 125 MG, BID
     Route: 048
     Dates: start: 20160627
  7. SALBUTAMOL [Concomitant]
     Active Substance: ALBUTEROL
  8. FUROSEMIDE. [Concomitant]
     Active Substance: FUROSEMIDE
  9. RAMIPRIL. [Concomitant]
     Active Substance: RAMIPRIL

REACTIONS (3)
  - Malaise [Recovering/Resolving]
  - Pneumonia [Recovering/Resolving]
  - Death [Fatal]

NARRATIVE: CASE EVENT DATE: 20180611
